FAERS Safety Report 16139611 (Version 1)
Quarter: 2019Q1

REPORT INFORMATION
  Report Type: Spontaneous
  Country: FR (occurrence: FR)
  Receive Date: 20190330
  Receipt Date: 20190330
  Transmission Date: 20190418
  Serious: Yes (Death)
  Sender: FDA-Public Use
  Company Number: PHHY2019FR072798

PATIENT
  Age: 74 Year
  Sex: Male
  Weight: 110 kg

DRUGS (1)
  1. TACROLIMUS. [Suspect]
     Active Substance: TACROLIMUS
     Indication: RENAL TRANSPLANT
     Dosage: 2 OT, QD
     Route: 065
     Dates: start: 20161111

REACTIONS (1)
  - Death [Fatal]

NARRATIVE: CASE EVENT DATE: 20181226
